FAERS Safety Report 14577648 (Version 1)
Quarter: 2018Q1

REPORT INFORMATION
  Report Type: Spontaneous
  Country: US (occurrence: US)
  Receive Date: 20180227
  Receipt Date: 20180227
  Transmission Date: 20180509
  Serious: Yes (Other)
  Sender: FDA-Public Use
  Company Number: US-UPSHER-SMITH LABORATORIES, LLC-2018USL00068

PATIENT
  Age: 75 Year
  Sex: Female

DRUGS (1)
  1. KLOR-CON M [Suspect]
     Active Substance: POTASSIUM CHLORIDE
     Route: 048

REACTIONS (7)
  - Wrong technique in product usage process [Not Recovered/Not Resolved]
  - Foreign body in respiratory tract [Recovered/Resolved]
  - Speech disorder [Unknown]
  - Throat irritation [Unknown]
  - Panic reaction [Recovered/Resolved]
  - Retching [Recovered/Resolved]
  - Oropharyngeal pain [Not Recovered/Not Resolved]

NARRATIVE: CASE EVENT DATE: 20180211
